FAERS Safety Report 9781397 (Version 1)
Quarter: 2013Q4

REPORT INFORMATION
  Report Type: Spontaneous
  Country: US (occurrence: US)
  Receive Date: 20131224
  Receipt Date: 20131224
  Transmission Date: 20140711
  Serious: No
  Sender: FDA-Public Use
  Company Number: US-GILEAD-2013-0090480

PATIENT
  Sex: Male

DRUGS (3)
  1. LETAIRIS [Suspect]
     Indication: PRODUCT USED FOR UNKNOWN INDICATION
     Route: 048
     Dates: start: 20121229
  2. VIAGRA [Concomitant]
  3. WARFARIN SODIUM [Concomitant]

REACTIONS (3)
  - Fall [Unknown]
  - Drug dose omission [Unknown]
  - Dyspnoea [Unknown]
